FAERS Safety Report 9471776 (Version 1)
Quarter: 2013Q3

REPORT INFORMATION
  Report Type: Report from Study
  Country: IE (occurrence: IE)
  Receive Date: 20130822
  Receipt Date: 20130822
  Transmission Date: 20140515
  Serious: Yes (Hospitalization)
  Sender: FDA-Public Use
  Company Number: IE-GLAXOSMITHKLINE-B0916241A

PATIENT
  Age: 78 Year
  Sex: Male

DRUGS (4)
  1. VOTRIENT [Suspect]
     Indication: PRODUCT USED FOR UNKNOWN INDICATION
     Route: 048
     Dates: start: 20130731, end: 20130814
  2. BRUFEN [Concomitant]
  3. IMODIUM [Concomitant]
  4. ZOTON [Concomitant]

REACTIONS (6)
  - Malaise [Not Recovered/Not Resolved]
  - Decreased appetite [Unknown]
  - Nausea [Unknown]
  - Somnolence [Unknown]
  - Faecal incontinence [Unknown]
  - Abdominal pain [Unknown]
